FAERS Safety Report 6960413-0 (Version None)
Quarter: 2010Q3

REPORT INFORMATION
  Report Type: 
  Country: None (occurrence: None)
  Receive Date: 20100823
  Receipt Date: 20100713
  Transmission Date: 20110219
  Serious: No
  Sender: FDA-Public Use
  Company Number: 015433

PATIENT
  Sex: Female
  Weight: 72.5 kg

DRUGS (6)
  1. CIMZIA [Suspect]
     Indication: CROHN'S DISEASE
     Dosage: (400 MG 1X/MONTH SUBCUTANEOUS)
     Route: 058
     Dates: start: 20100420
  2. TRAZODONE HCL [Concomitant]
  3. PAXIL [Concomitant]
  4. TOPIRAMATE [Concomitant]
  5. OMEPRAZOLE [Concomitant]
  6. VALTEX [Concomitant]

REACTIONS (9)
  - CHILLS [None]
  - DECREASED APPETITE [None]
  - DEFAECATION URGENCY [None]
  - DEHYDRATION [None]
  - DIARRHOEA [None]
  - DRUG INEFFECTIVE [None]
  - HOT FLUSH [None]
  - MUSCLE SPASMS [None]
  - NAUSEA [None]
